FAERS Safety Report 8523927 (Version 5)
Quarter: 2013Q1

REPORT INFORMATION
  Report Type: Report from Study
  Country: GB (occurrence: GB)
  Receive Date: 20120420
  Receipt Date: 20130121
  Transmission Date: 20140127
  Serious: Yes (Death, Life-Threatening)
  Sender: FDA-Public Use
  Company Number: GB-ABBOTT-12P-167-0926343-00

PATIENT
  Age: 52 Year
  Sex: Male

DRUGS (4)
  1. HUMIRA [Suspect]
     Indication: PSORIASIS
     Route: 058
     Dates: start: 20090707
  2. HUMIRA [Suspect]
     Route: 058
     Dates: start: 20100304, end: 20120322
  3. METFORMIN [Concomitant]
     Indication: TYPE 2 DIABETES MELLITUS
     Dates: start: 2006
  4. AMLODIPINE [Concomitant]
     Indication: HYPERTENSION
     Dates: start: 2002, end: 20100502

REACTIONS (1)
  - Squamous cell carcinoma of lung [Not Recovered/Not Resolved]
